FAERS Safety Report 5064190-2 (Version None)
Quarter: 2006Q3

REPORT INFORMATION
  Report Type: 
  Country: None (occurrence: None)
  Receive Date: 20060728
  Receipt Date: 20050713
  Transmission Date: 20061208
  Serious: No
  Sender: FDA-Public Use
  Company Number: US-GLAXOSMITHKLINE-A0566076A

PATIENT
  Age: 57 Year
  Sex: Female

DRUGS (4)
  1. ZANTAC [Suspect]
     Indication: DRUG USE FOR UNKNOWN INDICATION
     Dosage: 150MG UNKNOWN
     Route: 048
     Dates: start: 20050712
  2. SYNTHROID [Concomitant]
  3. TIMOLOL MALEATE [Concomitant]
  4. XANAX [Concomitant]

REACTIONS (1)
  - VISION BLURRED [None]
